FAERS Safety Report 22208754 (Version 1)
Quarter: 2023Q2

REPORT INFORMATION
  Report Type: Spontaneous
  Country: US (occurrence: US)
  Receive Date: 20230413
  Receipt Date: 20230413
  Transmission Date: 20230721
  Serious: Yes (Other)
  Sender: FDA-Public Use
  Company Number: US-JNJFOC-20190738117

PATIENT
  Age: 70 Year
  Sex: Female
  Weight: 88.530 kg

DRUGS (1)
  1. IMODIUM MULTI-SYMPTOM RELIEF [Suspect]
     Active Substance: DIMETHICONE\LOPERAMIDE HYDROCHLORIDE
     Indication: Diarrhoea
     Dosage: 4-6 CAPLETS AS NEEDED
     Route: 048
     Dates: end: 20190725

REACTIONS (1)
  - Ileostomy [Unknown]
